FAERS Safety Report 9639213 (Version 8)
Quarter: 2017Q4

REPORT INFORMATION
  Report Type: Report from Study
  Country: CA (occurrence: CA)
  Receive Date: 20131022
  Receipt Date: 20171007
  Transmission Date: 20180321
  Serious: Yes (Other)
  Sender: FDA-Public Use
  Company Number: CA-ROCHE-1177730

PATIENT
  Age: 44 Year
  Sex: Female
  Weight: 57 kg

DRUGS (14)
  1. RITUXAN [Suspect]
     Active Substance: RITUXIMAB
     Indication: RHEUMATOID ARTHRITIS
     Dosage: LAST DOSE:  14/FEB/2012, 20/OCT/2015 AND 25/JAN/2013.
     Route: 042
     Dates: start: 20080527
  2. FOLIC ACID. [Concomitant]
     Active Substance: FOLIC ACID
  3. ACETAMINOPHEN. [Concomitant]
     Active Substance: ACETAMINOPHEN
     Indication: PREMEDICATION
     Route: 048
     Dates: start: 20091110
  4. METHOTREXATE. [Concomitant]
     Active Substance: METHOTREXATE
     Route: 048
  5. LOSEC [Concomitant]
     Active Substance: OMEPRAZOLE
  6. GRAVOL [Concomitant]
     Active Substance: DIMENHYDRINATE
     Indication: PREMEDICATION
     Route: 048
     Dates: start: 20091110
  7. METHYLPREDNISOLONE. [Concomitant]
     Active Substance: METHYLPREDNISOLONE
     Route: 042
     Dates: start: 20080527
  8. FLURBIPROFEN. [Concomitant]
     Active Substance: FLURBIPROFEN
  9. GRAVOL [Concomitant]
     Active Substance: DIMENHYDRINATE
     Route: 048
     Dates: start: 20080527
  10. DIPHENHYDRAMINE HCL [Concomitant]
     Active Substance: DIPHENHYDRAMINE HYDROCHLORIDE
     Route: 048
     Dates: start: 20080527
  11. ACETAMINOPHEN. [Concomitant]
     Active Substance: ACETAMINOPHEN
     Route: 048
     Dates: start: 20080527
  12. METHYLPREDNISOLONE. [Concomitant]
     Active Substance: METHYLPREDNISOLONE
     Indication: PREMEDICATION
     Route: 042
     Dates: start: 20091110
  13. DIPHENHYDRAMINE HCL [Concomitant]
     Active Substance: DIPHENHYDRAMINE HYDROCHLORIDE
     Indication: PREMEDICATION
     Route: 048
     Dates: start: 20091110
  14. GRAVOL [Concomitant]
     Active Substance: DIMENHYDRINATE
     Route: 048
     Dates: start: 20080527

REACTIONS (14)
  - Joint injury [Unknown]
  - Anxiety disorder [Not Recovered/Not Resolved]
  - Infusion related reaction [Recovered/Resolved]
  - Finger deformity [Unknown]
  - Hot flush [Not Recovered/Not Resolved]
  - Blood cholesterol increased [Not Recovered/Not Resolved]
  - Pruritus [Recovered/Resolved]
  - Oxygen saturation decreased [Unknown]
  - Rheumatoid arthritis [Not Recovered/Not Resolved]
  - Musculoskeletal stiffness [Not Recovered/Not Resolved]
  - Escherichia infection [Recovered/Resolved]
  - Rheumatoid arthritis [Not Recovered/Not Resolved]
  - Joint swelling [Unknown]
  - Stress [Not Recovered/Not Resolved]

NARRATIVE: CASE EVENT DATE: 20080527
